FAERS Safety Report 8340905-2 (Version None)
Quarter: 2012Q2

REPORT INFORMATION
  Report Type: 
  Country: None (occurrence: None)
  Receive Date: 20120507
  Receipt Date: 20120427
  Transmission Date: 20120825
  Serious: Yes (Hospitalization, Other)
  Sender: FDA-Public Use
  Company Number: PHHY2012AU013717

PATIENT
  Sex: Male

DRUGS (7)
  1. PALIPERIDONE [Concomitant]
     Dosage: 100 MG, MONTHLY
     Route: 030
  2. CLOZARIL [Suspect]
     Dosage: 400 MG
     Dates: start: 20101217
  3. CLOZARIL [Suspect]
     Dosage: 450 MG, NOCTE DAILY
     Route: 048
  4. TETRAHYDROCANNABINOL [Concomitant]
  5. PALIPERIDONE [Concomitant]
     Dosage: 75 MG, MONTHLY
     Route: 030
  6. CLOZARIL [Suspect]
     Dosage: 300 MG, DAILY
     Route: 048
  7. ESCITALOPRAM [Concomitant]
     Dosage: 20 MG, MANE
     Route: 048

REACTIONS (12)
  - SUICIDAL IDEATION [None]
  - ABNORMAL BEHAVIOUR [None]
  - THOUGHT BLOCKING [None]
  - FEAR [None]
  - ANXIETY [None]
  - LETHARGY [None]
  - SCHIZOPHRENIA [None]
  - AKATHISIA [None]
  - PSYCHOTIC DISORDER [None]
  - DELUSIONAL DISORDER, MIXED TYPE [None]
  - HALLUCINATION [None]
  - RESTLESSNESS [None]
